FAERS Safety Report 5191938-9 (Version None)
Quarter: 2006Q4

REPORT INFORMATION
  Report Type: 
  Country: None (occurrence: None)
  Receive Date: 20061227
  Receipt Date: 20060221
  Transmission Date: 20070319
  Serious: Yes (Other)
  Sender: FDA-Public Use
  Company Number: FR-AVENTIS-200610820FR

PATIENT
  Age: 48 Year
  Sex: Male
  Weight: 75 kg

DRUGS (2)
  1. KETEK [Suspect]
     Indication: PNEUMONIA
     Route: 048
     Dates: start: 20060206, end: 20060215
  2. CELESTENE                          /00008501/ [Concomitant]
     Route: 048
     Dates: start: 20060206, end: 20060211

REACTIONS (3)
  - DIARRHOEA [None]
  - ROTAVIRUS TEST POSITIVE [None]
  - WEIGHT DECREASED [None]
